FAERS Safety Report 8217016 (Version 4)
Quarter: 2012Q4

REPORT INFORMATION
  Report Type: Report from Study
  Country: JP (occurrence: JP)
  Receive Date: 20111101
  Receipt Date: 20121220
  Transmission Date: 20130627
  Serious: Yes (Death, Life-Threatening, Disabling, Other)
  Sender: FDA-Public Use
  Company Number: JP-BRISTOL-MYERS SQUIBB COMPANY-16197782

PATIENT
  Age: 63 Year
  Sex: Male

DRUGS (15)
  1. SPRYCEL [Suspect]
     Indication: ACUTE LYMPHOCYTIC LEUKAEMIA
     Dosage: 70mgx2 mg/day
     Route: 048
     Dates: start: 20111011, end: 20111017
  2. L-ASPARAGINASE [Suspect]
     Dates: start: 20111001, end: 20111023
  3. LEUNASE [Concomitant]
     Indication: ACUTE LYMPHOCYTIC LEUKAEMIA
     Dosage: 1df:6000 KU
     Route: 042
     Dates: start: 20111015, end: 20111024
  4. ADRIAMYCIN [Concomitant]
     Indication: ACUTE LYMPHOCYTIC LEUKAEMIA
     Dosage: 01Oct11-3Oct11,15Oct11-17Oct11
     Route: 042
     Dates: start: 20111001, end: 20111017
  5. ONCOVIN [Concomitant]
     Indication: ACUTE LYMPHOCYTIC LEUKAEMIA
     Dosage: 1Oct,8Oct,15Oct,22Oct11
     Route: 042
     Dates: start: 20111001, end: 20111022
  6. PREDONINE [Concomitant]
     Indication: ACUTE LYMPHOCYTIC LEUKAEMIA
     Route: 048
     Dates: start: 20111001, end: 20111023
  7. MAXIPIME [Concomitant]
     Route: 042
     Dates: end: 20111026
  8. FUNGUARD [Concomitant]
     Indication: FUNGAL INFECTION
     Route: 042
     Dates: end: 20111024
  9. FOY [Concomitant]
     Route: 042
     Dates: start: 20111017, end: 20111027
  10. MEROPEN [Concomitant]
     Route: 042
     Dates: start: 20111026, end: 20111027
  11. DIFLUCAN [Concomitant]
     Indication: FUNGAL INFECTION
     Route: 042
     Dates: start: 20111024, end: 20111027
  12. LASIX [Concomitant]
     Indication: CARDIAC FAILURE
     Route: 042
     Dates: start: 20110917, end: 20111027
  13. INOVAN [Concomitant]
     Indication: CARDIAC FAILURE
     Dosage: 1df:2ml/hr
     Route: 042
     Dates: start: 20110917, end: 20111027
  14. VINCRISTINE [Concomitant]
     Dates: start: 20111001, end: 20111023
  15. PREDNISOLONE [Concomitant]
     Dates: start: 20111001, end: 20111023

REACTIONS (11)
  - Pulmonary haemorrhage [Fatal]
  - Gastrointestinal haemorrhage [Fatal]
  - White blood cell count decreased [Not Recovered/Not Resolved]
  - Neutrophil count decreased [Not Recovered/Not Resolved]
  - Platelet count decreased [Not Recovered/Not Resolved]
  - Anaemia [Not Recovered/Not Resolved]
  - Muscle haemorrhage [Not Recovered/Not Resolved]
  - Disseminated intravascular coagulation [Recovering/Resolving]
  - Renal impairment [Not Recovered/Not Resolved]
  - Diarrhoea [Recovering/Resolving]
  - Haematochezia [Recovering/Resolving]
